FAERS Safety Report 18000234 (Version 1)
Quarter: 2020Q3

REPORT INFORMATION
  Report Type: Spontaneous
  Country: US (occurrence: US)
  Receive Date: 20200709
  Receipt Date: 20200709
  Transmission Date: 20201103
  Serious: No
  Sender: FDA-Public Use
  Company Number: US-MYLANLABS-2020M1059033

PATIENT
  Age: 70 Year
  Sex: Female
  Weight: 65 kg

DRUGS (5)
  1. OMEPRAZOLE. [Concomitant]
     Active Substance: OMEPRAZOLE
  2. DESIPRAMINE [Concomitant]
     Active Substance: DESIPRAMINE
  3. ATENOLOL. [Concomitant]
     Active Substance: ATENOLOL
  4. ESTRADIOL VAGINAL CREAM USP [Suspect]
     Active Substance: ESTRADIOL
     Indication: VAGINAL EROSION
     Dosage: TWICE PER WEEK
     Route: 067
     Dates: end: 20200622
  5. CLORAZEPATE [Concomitant]
     Active Substance: CLORAZEPATE DIPOTASSIUM

REACTIONS (5)
  - Discomfort [Recovering/Resolving]
  - Urinary tract infection [Recovering/Resolving]
  - Vulvovaginal burning sensation [Recovering/Resolving]
  - Pyrexia [Recovering/Resolving]
  - Product physical consistency issue [Unknown]

NARRATIVE: CASE EVENT DATE: 202006
